FAERS Safety Report 21921706 (Version 5)
Quarter: 2023Q1

REPORT INFORMATION
  Report Type: Report from Study
  Country: FR (occurrence: FR)
  Receive Date: 20230127
  Receipt Date: 20230317
  Transmission Date: 20230417
  Serious: Yes (Hospitalization, Other)
  Sender: FDA-Public Use
  Company Number: FR-GILEAD-2023-0613628

PATIENT
  Sex: Female
  Weight: 47 kg

DRUGS (60)
  1. SACITUZUMAB GOVITECAN-HZIY [Suspect]
     Active Substance: SACITUZUMAB GOVITECAN-HZIY
     Indication: Triple negative breast cancer
     Dosage: 560 MG
     Route: 042
     Dates: start: 20221020, end: 20221020
  2. SACITUZUMAB GOVITECAN-HZIY [Suspect]
     Active Substance: SACITUZUMAB GOVITECAN-HZIY
     Dosage: 560 MG
     Route: 042
     Dates: start: 20221027, end: 20221027
  3. SACITUZUMAB GOVITECAN-HZIY [Suspect]
     Active Substance: SACITUZUMAB GOVITECAN-HZIY
     Dosage: 510 MG
     Route: 042
     Dates: start: 20221110, end: 20221110
  4. SACITUZUMAB GOVITECAN-HZIY [Suspect]
     Active Substance: SACITUZUMAB GOVITECAN-HZIY
     Dosage: 510 MG
     Route: 042
     Dates: start: 20221117, end: 20221117
  5. SACITUZUMAB GOVITECAN-HZIY [Suspect]
     Active Substance: SACITUZUMAB GOVITECAN-HZIY
     Dosage: 510 MG
     Route: 042
     Dates: start: 20221201, end: 20221201
  6. SACITUZUMAB GOVITECAN-HZIY [Suspect]
     Active Substance: SACITUZUMAB GOVITECAN-HZIY
     Dosage: 510 MG
     Route: 042
     Dates: start: 20221208, end: 20221208
  7. SACITUZUMAB GOVITECAN-HZIY [Suspect]
     Active Substance: SACITUZUMAB GOVITECAN-HZIY
     Dosage: 510 MG
     Route: 042
     Dates: start: 20221222, end: 20221222
  8. SACITUZUMAB GOVITECAN-HZIY [Suspect]
     Active Substance: SACITUZUMAB GOVITECAN-HZIY
     Dosage: 510 MG
     Route: 042
     Dates: start: 20221229, end: 20221229
  9. SACITUZUMAB GOVITECAN-HZIY [Suspect]
     Active Substance: SACITUZUMAB GOVITECAN-HZIY
     Dosage: 510 MG
     Route: 042
     Dates: start: 20230112, end: 20230112
  10. SACITUZUMAB GOVITECAN-HZIY [Suspect]
     Active Substance: SACITUZUMAB GOVITECAN-HZIY
     Dosage: UNK
     Route: 042
     Dates: start: 20230119, end: 20230119
  11. SACITUZUMAB GOVITECAN-HZIY [Suspect]
     Active Substance: SACITUZUMAB GOVITECAN-HZIY
     Dosage: UNK
     Route: 042
     Dates: start: 20230202, end: 20230202
  12. PEMBROLIZUMAB [Suspect]
     Active Substance: PEMBROLIZUMAB
     Indication: Triple negative breast cancer
     Dosage: 200 MG
     Route: 042
     Dates: start: 20221222, end: 20221222
  13. PEMBROLIZUMAB [Suspect]
     Active Substance: PEMBROLIZUMAB
     Dosage: 200 MG
     Route: 042
     Dates: start: 20230112, end: 20230112
  14. PEMBROLIZUMAB [Suspect]
     Active Substance: PEMBROLIZUMAB
     Dosage: 200 MG
     Route: 042
     Dates: start: 20221020, end: 20221020
  15. PEMBROLIZUMAB [Suspect]
     Active Substance: PEMBROLIZUMAB
     Dosage: 200 MG
     Route: 042
     Dates: start: 20221110, end: 20221110
  16. PEMBROLIZUMAB [Suspect]
     Active Substance: PEMBROLIZUMAB
     Dosage: 200 MG
     Route: 042
     Dates: start: 20221201, end: 20221201
  17. PEMBROLIZUMAB [Suspect]
     Active Substance: PEMBROLIZUMAB
     Dosage: 200 MG
     Route: 042
     Dates: start: 20230202, end: 20230202
  18. MIANSERIN HYDROCHLORIDE [Concomitant]
     Active Substance: MIANSERIN HYDROCHLORIDE
     Indication: Depression
     Route: 048
     Dates: start: 20220720
  19. EMEND [Concomitant]
     Active Substance: APREPITANT
     Indication: Prophylaxis
     Dosage: 80 MG
     Route: 048
     Dates: start: 20221018
  20. EMEND [Concomitant]
     Active Substance: APREPITANT
     Indication: Nausea
     Dosage: 125 MG
     Route: 048
     Dates: start: 20221018
  21. PRIMPERAN [Concomitant]
     Active Substance: METOCLOPRAMIDE HYDROCHLORIDE
     Indication: Prophylaxis
     Route: 048
     Dates: start: 20221020
  22. PRIMPERAN [Concomitant]
     Active Substance: METOCLOPRAMIDE HYDROCHLORIDE
     Indication: Nausea
  23. ONDANSETRON [Concomitant]
     Active Substance: ONDANSETRON
     Indication: Nausea
     Route: 048
     Dates: start: 20221027
  24. ONDANSETRON [Concomitant]
     Active Substance: ONDANSETRON
     Route: 048
     Dates: start: 20221027, end: 20230119
  25. FRESUBIN ORIGINAL [Concomitant]
     Indication: Abnormal loss of weight
     Route: 048
     Dates: start: 20221110, end: 20221221
  26. SKENAN [Concomitant]
     Active Substance: MORPHINE SULFATE
     Indication: Abdominal pain
     Route: 048
     Dates: start: 20221201
  27. SKENAN [Concomitant]
     Active Substance: MORPHINE SULFATE
     Dosage: 20 MG
     Route: 048
     Dates: start: 20221201, end: 20230119
  28. SKENAN [Concomitant]
     Active Substance: MORPHINE SULFATE
     Dosage: 10 MG
     Route: 048
     Dates: start: 20230119
  29. MORPHINE SULFATE [Concomitant]
     Active Substance: MORPHINE SULFATE
     Indication: Abdominal pain
     Route: 048
     Dates: start: 20221201
  30. MORPHINE SULFATE [Concomitant]
     Active Substance: MORPHINE SULFATE
     Dosage: 5 MG
     Route: 048
     Dates: start: 20221201, end: 20230202
  31. MEPILEX LITE [Concomitant]
     Indication: Skin lesion
     Route: 003
     Dates: start: 20221201
  32. ACETAMINOPHEN [Concomitant]
     Active Substance: ACETAMINOPHEN
     Indication: Abdominal pain
     Route: 048
     Dates: start: 20220811
  33. ATROPINE [Concomitant]
     Active Substance: ATROPINE
     Indication: Prophylaxis
     Route: 058
     Dates: start: 20221222, end: 20221222
  34. ATROPINE [Concomitant]
     Active Substance: ATROPINE
     Dosage: UNK MG
     Route: 058
     Dates: start: 20221229, end: 20221229
  35. ATROPINE [Concomitant]
     Active Substance: ATROPINE
     Dosage: UNK MG
     Route: 058
     Dates: start: 20230112, end: 20230112
  36. DAFALGAN [Concomitant]
     Active Substance: ACETAMINOPHEN
     Indication: Prophylaxis
     Dosage: 1000 MG
     Route: 048
     Dates: start: 20221222, end: 20221222
  37. DAFALGAN [Concomitant]
     Active Substance: ACETAMINOPHEN
     Dosage: 1000 MG
     Route: 048
     Dates: start: 20221229, end: 20221229
  38. DAFALGAN [Concomitant]
     Active Substance: ACETAMINOPHEN
     Route: 048
     Dates: start: 20230112, end: 20230112
  39. POLARAMINE [Concomitant]
     Active Substance: DEXCHLORPHENIRAMINE MALEATE
     Indication: Prophylaxis
     Dosage: 5 MG
     Route: 042
     Dates: start: 20221222, end: 20221222
  40. POLARAMINE [Concomitant]
     Active Substance: DEXCHLORPHENIRAMINE MALEATE
     Dosage: 5 MG
     Route: 042
     Dates: start: 20221229, end: 20221229
  41. POLARAMINE [Concomitant]
     Active Substance: DEXCHLORPHENIRAMINE MALEATE
     Dosage: 5 MG
     Route: 042
     Dates: start: 20230112, end: 20230112
  42. SOLU-MEDROL [Concomitant]
     Active Substance: METHYLPREDNISOLONE SODIUM SUCCINATE
     Indication: Prophylaxis
     Dosage: 40 MG
     Route: 042
     Dates: start: 20221222, end: 20221222
  43. SOLU-MEDROL [Concomitant]
     Active Substance: METHYLPREDNISOLONE SODIUM SUCCINATE
     Dosage: 40 MG
     Route: 042
     Dates: start: 20221229, end: 20221229
  44. SOLU-MEDROL [Concomitant]
     Active Substance: METHYLPREDNISOLONE SODIUM SUCCINATE
     Dosage: 40 MG
     Route: 042
     Dates: start: 20230112, end: 20230112
  45. KYTRIL [Concomitant]
     Active Substance: GRANISETRON HYDROCHLORIDE
     Indication: Prophylaxis
     Dosage: 3 MG
     Route: 042
     Dates: start: 20221222, end: 20221222
  46. KYTRIL [Concomitant]
     Active Substance: GRANISETRON HYDROCHLORIDE
     Dosage: 3 MG
     Route: 042
     Dates: start: 20221229, end: 20221229
  47. KYTRIL [Concomitant]
     Active Substance: GRANISETRON HYDROCHLORIDE
     Dosage: 3 MG
     Route: 042
     Dates: start: 20230112, end: 20230112
  48. INNOHEP [Concomitant]
     Active Substance: TINZAPARIN SODIUM
     Indication: Pulmonary embolism
     Dosage: 9000 IU
     Route: 058
     Dates: start: 20221219
  49. INNOHEP [Concomitant]
     Active Substance: TINZAPARIN SODIUM
     Dosage: 9000 IU
     Route: 058
     Dates: start: 20221219, end: 20230119
  50. INNOHEP [Concomitant]
     Active Substance: TINZAPARIN SODIUM
     Dosage: 3500 IU
     Route: 058
     Dates: start: 20230119, end: 20230120
  51. FRESUBIN MEGAREAL FIBRE [Concomitant]
     Indication: Malnutrition
     Route: 045
     Dates: start: 20221223
  52. AUGMENTIN [Concomitant]
     Active Substance: AMOXICILLIN\CLAVULANATE POTASSIUM
     Indication: Productive cough
     Route: 048
     Dates: start: 20221230, end: 20230110
  53. OXOMEMAZINE [Concomitant]
     Active Substance: OXOMEMAZINE
     Route: 048
     Dates: start: 20230112
  54. OXOMEMAZINE [Concomitant]
     Active Substance: OXOMEMAZINE
     Dosage: 10 ML
     Route: 048
     Dates: start: 20230112
  55. OXOMEMAZINE [Concomitant]
     Active Substance: OXOMEMAZINE
     Route: 048
     Dates: start: 20230112, end: 202301
  56. ALPRAZOLAM [Concomitant]
     Active Substance: ALPRAZOLAM
     Indication: Dyspnoea
     Route: 048
     Dates: start: 20230119
  57. ALPRAZOLAM [Concomitant]
     Active Substance: ALPRAZOLAM
     Route: 048
     Dates: start: 20230119, end: 20230130
  58. OXYGEN [Concomitant]
     Active Substance: OXYGEN
     Indication: Dyspnoea
     Dosage: 2 L
     Route: 045
     Dates: start: 20230119, end: 20230122
  59. OXYGEN [Concomitant]
     Active Substance: OXYGEN
     Route: 045
     Dates: start: 20230119, end: 20230122
  60. EMLA [Concomitant]
     Active Substance: LIDOCAINE\PRILOCAINE
     Indication: Prophylaxis
     Route: 061
     Dates: start: 20221020, end: 20230209

REACTIONS (2)
  - Bronchiolitis [Recovered/Resolved]
  - Decreased appetite [Recovered/Resolved]

NARRATIVE: CASE EVENT DATE: 20230119
